FAERS Safety Report 26001823 (Version 1)
Quarter: 2025Q4

REPORT INFORMATION
  Report Type: Spontaneous
  Country: MA (occurrence: MA)
  Receive Date: 20251105
  Receipt Date: 20251105
  Transmission Date: 20260117
  Serious: Yes (Other)
  Sender: PFIZER
  Company Number: MA-PFIZER INC-202500215683

PATIENT
  Sex: Female

DRUGS (1)
  1. IBRANCE [Suspect]
     Active Substance: PALBOCICLIB
     Dosage: 75, UNK
     Dates: start: 20250722

REACTIONS (1)
  - Immunodeficiency [Recovering/Resolving]

NARRATIVE: CASE EVENT DATE: 20251001
